FAERS Safety Report 14779090 (Version 3)
Quarter: 2019Q1

REPORT INFORMATION
  Report Type: Report from Study
  Country: None (occurrence: CA)
  Receive Date: 20180419
  Receipt Date: 20190212
  Transmission Date: 20190417
  Serious: Yes (Other)
  Sender: FDA-Public Use
  Company Number: CA-ABBVIE-18K-028-2324474-00

PATIENT
  Sex: Female

DRUGS (1)
  1. HUMIRA [Suspect]
     Active Substance: ADALIMUMAB
     Indication: ANKYLOSING SPONDYLITIS
     Route: 058
     Dates: start: 20151019, end: 201803

REACTIONS (4)
  - Petit mal epilepsy [Unknown]
  - Headache [Not Recovered/Not Resolved]
  - Cerebral disorder [Unknown]
  - Paraesthesia [Not Recovered/Not Resolved]
